FAERS Safety Report 4495475-6 (Version None)
Quarter: 2004Q4

REPORT INFORMATION
  Report Type: 
  Country: None (occurrence: None)
  Receive Date: 20041108
  Receipt Date: 20041027
  Transmission Date: 20050328
  Serious: Yes (Hospitalization)
  Sender: FDA-Public Use
  Company Number: FR-JNJFOC-20040607731

PATIENT
  Sex: Female
  Weight: 60 kg

DRUGS (10)
  1. RISPERDAL [Suspect]
     Dosage: 4-2-4
     Route: 049
  2. RISPERDAL [Suspect]
     Route: 049
  3. RISPERDAL [Suspect]
     Route: 049
  4. RISPERDAL [Suspect]
     Route: 049
  5. TERCIAN [Suspect]
     Route: 049
  6. TERCIAN [Suspect]
     Route: 049
  7. TERCIAN [Suspect]
     Route: 049
  8. TERCIAN [Suspect]
     Route: 049
  9. DEROXAT [Concomitant]
  10. XANAX [Concomitant]
     Dosage: 0.25 MG

REACTIONS (9)
  - AMENORRHOEA [None]
  - ANXIETY [None]
  - BREAST TENDERNESS [None]
  - DELUSION [None]
  - GALACTORRHOEA [None]
  - HYPERPROLACTINAEMIA [None]
  - OCULOGYRATION [None]
  - PSYCHOTIC DISORDER [None]
  - WEIGHT INCREASED [None]
